FAERS Safety Report 6723204-1 (Version None)
Quarter: 2010Q2

REPORT INFORMATION
  Report Type: 
  Country: None (occurrence: None)
  Receive Date: 20100513
  Receipt Date: 20100504
  Transmission Date: 20101027
  Serious: Yes (Other)
  Sender: FDA-Public Use
  Company Number: US-JNJFOC-20091203307

PATIENT
  Sex: Female

DRUGS (1)
  1. LEVAQUIN [Suspect]
     Indication: SURGERY
     Route: 048

REACTIONS (4)
  - ARTHRITIS [None]
  - DEPRESSION [None]
  - HYPERMOBILITY SYNDROME [None]
  - TENDONITIS [None]
